FAERS Safety Report 6632370-8 (Version None)
Quarter: 2010Q1

REPORT INFORMATION
  Report Type: 
  Country: None (occurrence: None)
  Receive Date: 20100312
  Receipt Date: 20100303
  Transmission Date: 20100710
  Serious: Yes (Hospitalization, Other)
  Sender: FDA-Public Use
  Company Number: US-MERCK-0901USA00890

PATIENT
  Age: 68 Year
  Sex: Female
  Weight: 70 kg

DRUGS (5)
  1. FOSAMAX [Suspect]
     Indication: OSTEOPENIA
     Route: 048
     Dates: start: 20050201, end: 20050501
  2. FOSAMAX [Suspect]
     Route: 048
     Dates: start: 20060101, end: 20070401
  3. FOSAMAX [Suspect]
     Indication: OSTEOPOROSIS
     Route: 048
     Dates: start: 20050201, end: 20050501
  4. FOSAMAX [Suspect]
     Route: 048
     Dates: start: 20060101, end: 20070401
  5. ELMIRON [Concomitant]
     Indication: CYSTITIS INTERSTITIAL
     Route: 065
     Dates: start: 19980101

REACTIONS (30)
  - ABDOMINAL PAIN UPPER [None]
  - ACUTE SINUSITIS [None]
  - ARTHRALGIA [None]
  - ARTHROPATHY [None]
  - ATROPHIC VULVOVAGINITIS [None]
  - BACK PAIN [None]
  - BONE DISORDER [None]
  - BUNION [None]
  - CHRONIC SINUSITIS [None]
  - CLAVICLE FRACTURE [None]
  - DACRYOCANALICULITIS [None]
  - DIARRHOEA [None]
  - EPIGASTRIC DISCOMFORT [None]
  - FALL [None]
  - FATIGUE [None]
  - FOOT FRACTURE [None]
  - HUMERUS FRACTURE [None]
  - HYPERLIPIDAEMIA [None]
  - LACTASE DEFICIENCY [None]
  - LIVER FUNCTION TEST ABNORMAL [None]
  - MASS [None]
  - MYALGIA [None]
  - NASAL SEPTUM DISORDER [None]
  - NAUSEA [None]
  - OSTEOMYELITIS [None]
  - OSTEONECROSIS [None]
  - SINUS DISORDER [None]
  - SKIN CANCER [None]
  - TOOTH INFECTION [None]
  - UPPER LIMB FRACTURE [None]
